FAERS Safety Report 15539593 (Version 1)
Quarter: 2018Q4

REPORT INFORMATION
  Report Type: Report from Study
  Country: None (occurrence: DE)
  Receive Date: 20181023
  Receipt Date: 20181023
  Transmission Date: 20190205
  Serious: Yes (Death, Hospitalization)
  Sender: FDA-Public Use
  Company Number: DE-ABBVIE-18S-062-2459105-00

PATIENT
  Sex: Male

DRUGS (3)
  1. MADOPAR RETARD [Concomitant]
     Indication: PRODUCT USED FOR UNKNOWN INDICATION
  2. DUODOPA [Suspect]
     Active Substance: CARBIDOPA\LEVODOPA
     Indication: PARKINSON^S DISEASE
     Dosage: MD 9 ML; CRD 5.2 ML/HR; ED 1 ML
     Route: 050
     Dates: start: 20180201, end: 201806
  3. DUODOPA [Suspect]
     Active Substance: CARBIDOPA\LEVODOPA
     Dosage: MD 9 ML; CRD 5.4 ML/HR; ED 1.5 ML
     Route: 050
     Dates: start: 201806

REACTIONS (4)
  - Pneumonia [Fatal]
  - Muscle spasms [Not Recovered/Not Resolved]
  - Epilepsy [Unknown]
  - Akinesia [Recovering/Resolving]

NARRATIVE: CASE EVENT DATE: 2018
